FAERS Safety Report 5021439-X (Version None)
Quarter: 2006Q2

REPORT INFORMATION
  Report Type: 
  Country: None (occurrence: None)
  Receive Date: 20060425
  Receipt Date: 20060120
  Transmission Date: 20061013
  Serious: No
  Sender: FDA-Public Use
  Company Number: 221333

PATIENT
  Age: 18 Year
  Sex: Female
  Weight: 61.2 kg

DRUGS (5)
  1. XOLAIR [Suspect]
     Indication: ASTHMA
     Dosage: 375 MG, Q2W, SUBCUTANEOUS
     Route: 058
     Dates: start: 20050705
  2. ALLEGRA [Concomitant]
  3. VENTOLIN [Concomitant]
  4. INTAL [Concomitant]
  5. PULMICORT [Concomitant]

REACTIONS (2)
  - GLUCOSE URINE PRESENT [None]
  - HYPERGLYCAEMIA [None]
